FAERS Safety Report 6517782-5 (Version None)
Quarter: 2009Q4

REPORT INFORMATION
  Report Type: 
  Country: None (occurrence: None)
  Receive Date: 20091218
  Receipt Date: 20091210
  Transmission Date: 20100525
  Serious: Yes (Death, Hospitalization)
  Sender: FDA-Public Use
  Company Number: 2009-197931-NL

PATIENT
  Age: 35 Year
  Sex: Female
  Weight: 54.4316 kg

DRUGS (3)
  1. NUVARING [Suspect]
     Indication: CONTRACEPTION
     Dosage: 1 DF
     Dates: start: 20070301, end: 20070601
  2. IMITREX [Concomitant]
  3. WELLBUTRIN [Concomitant]

REACTIONS (10)
  - BLOOD GLUCOSE INCREASED [None]
  - CEREBRAL INFARCTION [None]
  - COMA [None]
  - GENERAL PHYSICAL HEALTH DETERIORATION [None]
  - HAEMORRHAGIC STROKE [None]
  - INFLUENZA [None]
  - SINUS HEADACHE [None]
  - UNRESPONSIVE TO STIMULI [None]
  - VASCULITIS [None]
  - WHITE BLOOD CELL COUNT INCREASED [None]
